FAERS Safety Report 7399255-3 (Version None)
Quarter: 2011Q2

REPORT INFORMATION
  Report Type: 
  Country: None (occurrence: None)
  Receive Date: 20110407
  Receipt Date: 20110405
  Transmission Date: 20111010
  Serious: Yes (Death)
  Sender: FDA-Public Use
  Company Number: GB-TEVA-271051ISR

PATIENT
  Age: 46 Year
  Sex: Female
  Weight: 74 kg

DRUGS (1)
  1. PROPRANOLOL [Suspect]
     Indication: ANXIETY
     Route: 048
     Dates: start: 20110124, end: 20110125

REACTIONS (3)
  - CHEST PAIN [None]
  - ARRHYTHMIA [None]
  - LEFT VENTRICULAR HYPERTROPHY [None]
